FAERS Safety Report 23370331 (Version 1)
Quarter: 2024Q1

REPORT INFORMATION
  Report Type: Spontaneous
  Country: US (occurrence: US)
  Receive Date: 20240105
  Receipt Date: 20240105
  Transmission Date: 20240410
  Serious: No
  Sender: FDA-Public Use
  Company Number: US-SA-SAC20231226000696

PATIENT
  Age: 49 Year
  Sex: Female

DRUGS (1)
  1. DUPIXENT [Suspect]
     Active Substance: DUPILUMAB
     Indication: Asthma
     Dosage: 300 MG, QOW
     Route: 058
     Dates: start: 202308, end: 202310

REACTIONS (6)
  - Hypersensitivity [Unknown]
  - Urticaria [Unknown]
  - Swelling [Unknown]
  - Pruritus [Unknown]
  - Lip swelling [Unknown]
  - Stridor [Unknown]

NARRATIVE: CASE EVENT DATE: 20230101
